FAERS Safety Report 13553777 (Version 2)
Quarter: 2017Q3

REPORT INFORMATION
  Report Type: Report from Study
  Country: US (occurrence: US)
  Receive Date: 20170517
  Receipt Date: 20170818
  Transmission Date: 20171127
  Serious: Yes (Hospitalization)
  Sender: FDA-Public Use
  Company Number: US-BAYER-2017-035716

PATIENT
  Age: 76 Year
  Sex: Male

DRUGS (19)
  1. XOFIGO [Suspect]
     Active Substance: RADIUM RA-223 DICHLORIDE
     Indication: PROSTATE CANCER STAGE IV
     Dosage: 116.10 UCI, ONCE EVERY 28 DAYS
     Route: 042
     Dates: start: 20170118
  2. HYDROCORTISONE. [Concomitant]
     Active Substance: HYDROCORTISONE
  3. COLACE [Concomitant]
     Active Substance: DOCUSATE SODIUM
  4. FISH OIL [Concomitant]
     Active Substance: FISH OIL
  5. MULTIVITAMIN [Concomitant]
     Active Substance: VITAMINS
  6. PRILOSEC [Concomitant]
     Active Substance: OMEPRAZOLE MAGNESIUM
  7. POTASSIUM [Concomitant]
     Active Substance: POTASSIUM
  8. OXYCODONE HYDROCHLORIDE. [Concomitant]
     Active Substance: OXYCODONE HYDROCHLORIDE
  9. LIDOCAINE HYDROCHLORIDE. [Concomitant]
     Active Substance: LIDOCAINE HYDROCHLORIDE
  10. XOFIGO [Suspect]
     Active Substance: RADIUM RA-223 DICHLORIDE
     Indication: METASTASES TO BONE
     Dosage: UNK
     Route: 042
     Dates: start: 20170301
  11. FLONASE [Concomitant]
     Active Substance: FLUTICASONE PROPIONATE
  12. ONDANSETRON [Concomitant]
     Active Substance: ONDANSETRON
  13. XOFIGO [Suspect]
     Active Substance: RADIUM RA-223 DICHLORIDE
     Indication: PROSTATE CANCER STAGE IV
     Dosage: DAILY DOSE 115.89 ?CI
     Route: 042
     Dates: start: 20170329, end: 20170329
  14. XOFIGO [Suspect]
     Active Substance: RADIUM RA-223 DICHLORIDE
     Indication: PROSTATE CANCER STAGE IV
     Dosage: 98.10 UCI, ONCE EVERY 28 DAYS
     Route: 042
     Dates: start: 20170712
  15. FENTANYL. [Concomitant]
     Active Substance: FENTANYL
  16. ZYRTEC [Concomitant]
     Active Substance: CETIRIZINE HYDROCHLORIDE
  17. FERROUS SULFATE. [Concomitant]
     Active Substance: FERROUS SULFATE
  18. FUROSEMIDE. [Concomitant]
     Active Substance: FUROSEMIDE
  19. RITALIN [Concomitant]
     Active Substance: METHYLPHENIDATE HYDROCHLORIDE

REACTIONS (8)
  - Musculoskeletal chest pain [None]
  - Headache [None]
  - Spinal pain [None]
  - Blood count abnormal [None]
  - Surgery [None]
  - Platelet count decreased [None]
  - Haemoglobin decreased [None]
  - Neutrophil count decreased [None]

NARRATIVE: CASE EVENT DATE: 20170329
